FAERS Safety Report 9193845 (Version 3)
Quarter: 2013Q4

REPORT INFORMATION
  Report Type: Spontaneous
  Country: US (occurrence: None)
  Receive Date: 20120703
  Receipt Date: 20131226
  Transmission Date: 20140711
  Serious: Yes (Other)
  Sender: FDA-Public Use
  Company Number: PHEH2012US005811

PATIENT
  Age: 46 Year
  Sex: Female

DRUGS (1)
  1. GILENYA (FTY) CAPSULE, 0.5MG [Suspect]
     Indication: MULTIPLE SCLEROSIS
     Route: 048
     Dates: start: 20120309

REACTIONS (7)
  - Fall [None]
  - Muscle spasms [None]
  - Fatigue [None]
  - Heart rate decreased [None]
  - Back pain [None]
  - Headache [None]
  - Injury [None]
